FAERS Safety Report 6519549-0 (Version None)
Quarter: 2009Q4

REPORT INFORMATION
  Report Type: 
  Country: None (occurrence: None)
  Receive Date: 20091228
  Receipt Date: 20091215
  Transmission Date: 20100525
  Serious: Yes (Other)
  Sender: FDA-Public Use
  Company Number: US-WATSON-2009-10757

PATIENT
  Age: 46 Year
  Sex: Male

DRUGS (3)
  1. FENTANYL-100 [Suspect]
     Indication: PAIN
     Dosage: APPLY 1 PATCH, Q 48 HRS.
     Route: 062
     Dates: start: 20091101, end: 20091122
  2. FENTANYL-100 [Suspect]
     Dosage: APPLY 1 PATCH, Q 48 HRS.
     Route: 062
     Dates: start: 19990101, end: 20091101
  3. FENTANYL-75 [Suspect]
     Indication: PAIN
     Dosage: APPLY 1 PATCH, Q 48 HRS.
     Route: 062
     Dates: start: 20091122, end: 20091214

REACTIONS (8)
  - CONVULSION [None]
  - DEVICE LEAKAGE [None]
  - DRUG TOXICITY [None]
  - HYPERHIDROSIS [None]
  - LOSS OF CONSCIOUSNESS [None]
  - NAUSEA [None]
  - OVERDOSE [None]
  - RESPIRATORY ARREST [None]
